FAERS Safety Report 20008088 (Version 1)
Quarter: 2021Q4

REPORT INFORMATION
  Report Type: Report from Study
  Country: GB (occurrence: GB)
  Receive Date: 20211028
  Receipt Date: 20211028
  Transmission Date: 20220303
  Serious: Yes (Other)
  Sender: FDA-Public Use
  Company Number: GB-TAKEDA-2021TUS057010

PATIENT
  Age: 67 Year
  Sex: Female

DRUGS (2)
  1. AZITHROMYCIN ANHYDROUS [Suspect]
     Active Substance: AZITHROMYCIN ANHYDROUS
     Indication: Lower respiratory tract infection
     Dosage: UNK; ;
     Route: 065
     Dates: end: 20211010
  2. VEDOLIZUMAB [Suspect]
     Active Substance: VEDOLIZUMAB
     Indication: Colitis ulcerative
     Dosage: 108 MILLIGRAM;
     Route: 058
     Dates: start: 20210903

REACTIONS (8)
  - Lower respiratory tract infection [Unknown]
  - Urinary tract infection [Unknown]
  - Chronic obstructive pulmonary disease [Unknown]
  - Oral pain [Unknown]
  - Lip dry [Unknown]
  - Tongue erythema [Unknown]
  - Swollen tongue [Unknown]
  - Dyspnoea [Unknown]
